FAERS Safety Report 7132220-X (Version None)
Quarter: 2010Q4

REPORT INFORMATION
  Report Type: 
  Country: None (occurrence: None)
  Receive Date: 20101202
  Receipt Date: 20101125
  Transmission Date: 20110411
  Serious: Yes (Hospitalization)
  Sender: FDA-Public Use
  Company Number: GB-BRISTOL-MYERS SQUIBB COMPANY-12602470

PATIENT

DRUGS (1)
  1. CEPHRADINE [Suspect]
     Indication: INFECTION
     Route: 048
     Dates: start: 20040115, end: 20040122

REACTIONS (3)
  - BLOOD BILIRUBIN INCREASED [None]
  - HEPATIC ENZYME INCREASED [None]
  - JAUNDICE [None]
